FAERS Safety Report 21173326 (Version 1)
Quarter: 2022Q3

REPORT INFORMATION
  Report Type: Spontaneous
  Country: US (occurrence: None)
  Receive Date: 20220804
  Receipt Date: 20220804
  Transmission Date: 20221027
  Serious: No
  Sender: FDA-Public Use
  Company Number: None

PATIENT
  Sex: Male

DRUGS (1)
  1. COPIKTRA [Suspect]
     Active Substance: DUVELISIB

REACTIONS (4)
  - Dyspnoea [None]
  - Dizziness [None]
  - Emergency care [None]
  - Dialysis [None]
